FAERS Safety Report 6448313-6 (Version None)
Quarter: 2009Q4

REPORT INFORMATION
  Report Type: 
  Country: None (occurrence: None)
  Receive Date: 20091120
  Receipt Date: 20091112
  Transmission Date: 20100525
  Serious: Yes (Other)
  Sender: FDA-Public Use
  Company Number: PHEH2009US15994

PATIENT
  Age: 77 Year
  Sex: Male
  Weight: 81.1 kg

DRUGS (2)
  1. GLEEVEC [Suspect]
     Indication: GASTRIC CANCER
     Dosage: 400 MG, QD
     Route: 048
     Dates: start: 20090902, end: 20091001
  2. GLEEVEC [Suspect]
     Dosage: 200 MG, QD
     Route: 048
     Dates: start: 20091001

REACTIONS (3)
  - DECREASED APPETITE [None]
  - RASH [None]
  - RENAL DISORDER [None]
